FAERS Safety Report 23315718 (Version 1)
Quarter: 2023Q4

REPORT INFORMATION
  Report Type: Spontaneous
  Country: US (occurrence: None)
  Receive Date: 20231219
  Receipt Date: 20231219
  Transmission Date: 20240110
  Serious: No
  Sender: FDA-Public Use
  Company Number: None

PATIENT
  Age: 69 Year
  Sex: Female

DRUGS (1)
  1. REPATHA [Suspect]
     Active Substance: EVOLOCUMAB

REACTIONS (9)
  - Dizziness [None]
  - Hyperhidrosis [None]
  - Abdominal discomfort [None]
  - Tremor [None]
  - Confusional state [None]
  - Feeling abnormal [None]
  - Nausea [None]
  - Rhinorrhoea [None]
  - Nasopharyngitis [None]
